FAERS Safety Report 7740502-3 (Version None)
Quarter: 2011Q3

REPORT INFORMATION
  Report Type: 
  Country: None (occurrence: None)
  Receive Date: 20110909
  Receipt Date: 20110829
  Transmission Date: 20111222
  Serious: Yes (Other)
  Sender: FDA-Public Use
  Company Number: US-CELGENEUS-163-21880-11083386

PATIENT
  Sex: Male

DRUGS (15)
  1. REVLIMID [Suspect]
     Dosage: 10 MILLIGRAM
     Route: 048
     Dates: start: 20110512, end: 20110520
  2. VELCADE [Concomitant]
     Route: 065
     Dates: start: 20100831
  3. ALLOPURINOL [Concomitant]
     Indication: RENAL DISORDER
     Route: 065
  4. DEXAMETHASONE [Concomitant]
     Indication: MULTIPLE MYELOMA
     Route: 065
     Dates: start: 20100831
  5. COLACE [Concomitant]
     Indication: CONSTIPATION
     Route: 065
  6. MIRALAX [Concomitant]
     Indication: CONSTIPATION
     Route: 065
  7. DILAUDID [Concomitant]
     Indication: PAIN
     Route: 065
  8. ZITHROMAX [Concomitant]
     Indication: RESPIRATORY DISORDER
     Route: 065
  9. REVLIMID [Suspect]
     Indication: MULTIPLE MYELOMA
     Dosage: 25 MILLIGRAM
     Route: 048
     Dates: start: 20110304
  10. NORFLEX [Concomitant]
     Route: 065
  11. COUMADIN [Concomitant]
     Route: 065
  12. REVLIMID [Suspect]
     Dosage: 10 MILLIGRAM
     Route: 048
     Dates: start: 20110525
  13. FOLIC ACID [Concomitant]
     Indication: MULTIPLE MYELOMA
     Route: 065
  14. PERCOCET [Concomitant]
     Indication: PAIN
     Route: 065
  15. OMEPRAZOLE [Concomitant]
     Indication: GASTRIC DISORDER
     Route: 065

REACTIONS (2)
  - MYOPATHY [None]
  - BLOOD CREATININE INCREASED [None]
